FAERS Safety Report 8883909 (Version 3)
Quarter: 2013Q2

REPORT INFORMATION
  Report Type: Spontaneous
  Country: US (occurrence: US)
  Receive Date: 20121102
  Receipt Date: 20130522
  Transmission Date: 20140414
  Serious: No
  Sender: FDA-Public Use
  Company Number: US-ASTRAZENECA-2012SE10923

PATIENT
  Age: 55 Year
  Sex: Female

DRUGS (2)
  1. CRESTOR [Suspect]
     Route: 048
  2. OTHER CHOLESTEROL MEDICATIONS [Suspect]
     Indication: BLOOD CHOLESTEROL ABNORMAL
     Route: 065

REACTIONS (4)
  - Nasopharyngitis [Unknown]
  - Malaise [Unknown]
  - Myalgia [Unknown]
  - Arthralgia [Unknown]
